FAERS Safety Report 7270928-6 (Version None)
Quarter: 2011Q1

REPORT INFORMATION
  Report Type: 
  Country: None (occurrence: None)
  Receive Date: 20110121
  Receipt Date: 20110121
  Transmission Date: 20110831
  Serious: No
  Sender: FDA-Public Use
  Company Number: None

PATIENT
  Age: 65 Year
  Sex: Female
  Weight: 77.1115 kg

DRUGS (6)
  1. MULTIVITAMIN [Suspect]
  2. RED RICE YEAST [Concomitant]
  3. VIACTIV [Suspect]
     Indication: BONE DENSITY DECREASED
     Dosage: 1 CHEW UP TO TWICE A DAY PO
     Route: 048
     Dates: start: 20101216, end: 20101222
  4. FISH OIL [Concomitant]
  5. ZANTAC [Suspect]
  6. GLUCOSAMINE/CHONDROTIN [Concomitant]

REACTIONS (3)
  - DIARRHOEA [None]
  - URINE OUTPUT DECREASED [None]
  - ABDOMINAL PAIN [None]
